FAERS Safety Report 4724269-9 (Version None)
Quarter: 2005Q3

REPORT INFORMATION
  Report Type: 
  Country: None (occurrence: None)
  Receive Date: 20050722
  Receipt Date: 20050711
  Transmission Date: 20060218
  Serious: Yes (Life-Threatening, Other)
  Sender: FDA-Public Use
  Company Number: 2005088994

PATIENT
  Age: 25 Year
  Sex: Male

DRUGS (1)
  1. ZITHROMAX [Suspect]
     Indication: PERTUSSIS
     Dosage: ORAL
     Route: 048

REACTIONS (4)
  - CYTOLYTIC HEPATITIS [None]
  - HEPATITIS B VIRUS [None]
  - HEPATITIS FULMINANT [None]
  - PROTHROMBIN LEVEL DECREASED [None]
